FAERS Safety Report 5110222-2 (Version None)
Quarter: 2006Q3

REPORT INFORMATION
  Report Type: 
  Country: None (occurrence: None)
  Receive Date: 20060921
  Receipt Date: 20060426
  Transmission Date: 20061208
  Serious: Yes (Life-Threatening, Hospitalization, Disabling, Other)
  Sender: FDA-Public Use
  Company Number: 2006SE02566

PATIENT
  Age: 31685 Day
  Sex: Female

DRUGS (10)
  1. ARIMIDEX [Suspect]
     Indication: BREAST CANCER
     Route: 048
     Dates: start: 20051017, end: 20060302
  2. LEVAXIN [Concomitant]
  3. BISOPROLOL FUMARATE [Concomitant]
  4. TEVETEN [Concomitant]
  5. SALURES [Concomitant]
  6. MINIDIAB [Concomitant]
  7. GLUCOPHAGE [Concomitant]
  8. OMEPRAZOLE [Concomitant]
  9. FLUTICE NASAL [Concomitant]
  10. SEREVENT [Concomitant]

REACTIONS (1)
  - TOXIC EPIDERMAL NECROLYSIS [None]
